FAERS Safety Report 4509118-6 (Version None)
Quarter: 2004Q4

REPORT INFORMATION
  Report Type: 
  Country: None (occurrence: None)
  Receive Date: 20041025
  Receipt Date: 20040823
  Transmission Date: 20050328
  Serious: Yes (Hospitalization)
  Sender: FDA-Public Use
  Company Number: US-JNJFOC-20040807922

PATIENT
  Age: 17 Year
  Sex: Male
  Weight: 72 kg

DRUGS (5)
  1. REMICADE [Suspect]
     Indication: CROHN'S DISEASE
     Dosage: INTRAVENOUS
     Route: 042
     Dates: start: 20040812
  2. PREDNISONE [Concomitant]
  3. PREVACID ( ) PREVACID [Concomitant]
  4. FOLATE ( ) FOLATE SODIUM [Concomitant]
  5. IRON ( ) IRON [Concomitant]

REACTIONS (1)
  - NAUSEA [None]
